FAERS Safety Report 20612338 (Version 1)
Quarter: 2022Q1

REPORT INFORMATION
  Report Type: Spontaneous
  Country: CN (occurrence: None)
  Receive Date: 20220318
  Receipt Date: 20220318
  Transmission Date: 20220423
  Serious: Yes (Hospitalization)
  Sender: FDA-Public Use
  Company Number: CN-ROCHE-3045378

PATIENT
  Age: 43 Year
  Sex: Female
  Weight: 70 kg

DRUGS (9)
  1. PERTUZUMAB [Suspect]
     Active Substance: PERTUZUMAB
     Indication: Breast cancer
     Dosage: 840 MG FIRST, THEN 420 MG
     Route: 041
     Dates: start: 20210914
  2. PERTUZUMAB [Suspect]
     Active Substance: PERTUZUMAB
     Indication: Metastases to liver
  3. PERTUZUMAB [Suspect]
     Active Substance: PERTUZUMAB
     Indication: Metastases to bone
  4. TRASTUZUMAB [Suspect]
     Active Substance: TRASTUZUMAB
     Indication: Breast cancer
     Route: 041
     Dates: start: 20210914
  5. TRASTUZUMAB [Suspect]
     Active Substance: TRASTUZUMAB
     Indication: Metastases to liver
  6. TRASTUZUMAB [Suspect]
     Active Substance: TRASTUZUMAB
     Indication: Metastases to bone
  7. PACLITAXEL [Suspect]
     Active Substance: PACLITAXEL
     Indication: Breast cancer
     Dosage: DAY1, 8
     Route: 041
     Dates: start: 20210914
  8. PACLITAXEL [Suspect]
     Active Substance: PACLITAXEL
     Indication: Metastases to liver
  9. PACLITAXEL [Suspect]
     Active Substance: PACLITAXEL
     Indication: Metastases to bone

REACTIONS (1)
  - Hepatic function abnormal [Unknown]
